FAERS Safety Report 8775535 (Version 3)
Quarter: 2012Q4

REPORT INFORMATION
  Report Type: Report from Study
  Country: US (occurrence: US)
  Receive Date: 20120909
  Receipt Date: 20121001
  Transmission Date: 20130627
  Serious: Yes (Other)
  Sender: FDA-Public Use
  Company Number: US-ABBOTT-12P-163-0974108-00

PATIENT
  Age: 69 Year
  Sex: Female

DRUGS (13)
  1. TYLENOL [Concomitant]
     Indication: PAIN
  2. MELOXICAM [Concomitant]
     Indication: ARTHRITIS
  3. AMITIZA [Concomitant]
     Indication: GASTROINTESTINAL DISORDER
  4. VITAMIN D [Concomitant]
     Indication: PRODUCT USED FOR UNKNOWN INDICATION
  5. COLACE [Concomitant]
     Indication: PRODUCT USED FOR UNKNOWN INDICATION
  6. HUMIRA [Suspect]
     Indication: CROHN^S DISEASE
     Dates: start: 20110926
  7. CARDIZEM [Concomitant]
     Indication: ATRIAL FIBRILLATION
     Dosage: 60 mg in AM and 30 mg in PM
  8. CARDIZEM [Concomitant]
     Indication: CARDIAC PACEMAKER INSERTION
  9. DIOVAN [Concomitant]
     Indication: HYPERTENSION
  10. ASPIRIN [Concomitant]
     Indication: PRODUCT USED FOR UNKNOWN INDICATION
  11. VESICARE [Concomitant]
     Indication: PRODUCT USED FOR UNKNOWN INDICATION
  12. OXYGEN [Concomitant]
     Indication: PRODUCT USED FOR UNKNOWN INDICATION
  13. MULTIVITAMIN [Concomitant]
     Indication: PRODUCT USED FOR UNKNOWN INDICATION

REACTIONS (8)
  - Rotator cuff syndrome [Unknown]
  - Cataract [Not Recovered/Not Resolved]
  - Cataract [Not Recovered/Not Resolved]
  - Injection site pain [Unknown]
  - Injection site bruising [Recovered/Resolved]
  - Dry eye [Unknown]
  - Injection site pain [Unknown]
  - Injection site bruising [Unknown]
